FAERS Safety Report 9128815 (Version 2)
Quarter: 2013Q1

REPORT INFORMATION
  Report Type: Report from Study
  Country: US (occurrence: US)
  Receive Date: 20130228
  Receipt Date: 20130314
  Transmission Date: 20140127
  Serious: Yes (Hospitalization, Other)
  Sender: FDA-Public Use
  Company Number: US-MYLANLABS-2013S1003946

PATIENT
  Age: 48 Year
  Sex: Male
  Weight: 108 kg

DRUGS (5)
  1. AMNESTEEM CAPSULES [Suspect]
     Indication: ACNE
     Route: 048
     Dates: start: 20120822, end: 20130215
  2. CLARAVIS [Suspect]
     Indication: ACNE
     Route: 048
     Dates: start: 201212, end: 20130215
  3. GEMFIBROZIL [Concomitant]
     Dates: start: 20121220
  4. LISINOPRIL [Concomitant]
  5. ACTOPLUS MET [Concomitant]

REACTIONS (8)
  - Blindness unilateral [Recovered/Resolved]
  - Ulcerative keratitis [Recovered/Resolved]
  - Vision blurred [Recovered/Resolved]
  - Headache [Recovered/Resolved]
  - Dry eye [Recovered/Resolved]
  - Blood triglycerides increased [Not Recovered/Not Resolved]
  - Lacrimation decreased [Not Recovered/Not Resolved]
  - Eye pain [Not Recovered/Not Resolved]
